FAERS Safety Report 7800106-0 (Version None)
Quarter: 2011Q4

REPORT INFORMATION
  Report Type: 
  Country: None (occurrence: None)
  Receive Date: 20111006
  Receipt Date: 20110928
  Transmission Date: 20120403
  Serious: Yes (Other)
  Sender: FDA-Public Use
  Company Number: RO-ABBOTT-11P-135-0860519-00

PATIENT
  Age: 20 Year
  Sex: Female

DRUGS (5)
  1. HUMIRA [Suspect]
     Indication: ANKYLOSING SPONDYLITIS
     Route: 058
     Dates: start: 20100416
  2. KETOPROFEN [Concomitant]
     Indication: PRODUCT USED FOR UNKNOWN INDICATION
     Dates: start: 20090101
  3. METHOTREXATE [Concomitant]
     Indication: ANKYLOSING SPONDYLITIS
     Dates: start: 20060101, end: 20091201
  4. SULFASLAZINE [Concomitant]
     Indication: ANKYLOSING SPONDYLITIS
     Dates: start: 20091201
  5. LEFLUNOMIDE [Concomitant]
     Indication: ANKYLOSING SPONDYLITIS
     Dates: start: 20100526

REACTIONS (3)
  - SUBCUTANEOUS ABSCESS [None]
  - FISTULA [None]
  - URINARY TRACT INFECTION [None]
